FAERS Safety Report 4583952-9 (Version None)
Quarter: 2005Q1

REPORT INFORMATION
  Report Type: 
  Country: None (occurrence: None)
  Receive Date: 20050211
  Receipt Date: 20050131
  Transmission Date: 20050727
  Serious: Yes (Other)
  Sender: FDA-Public Use
  Company Number: HQWYE081103FEB05

PATIENT
  Age: 58 Year
  Sex: Male

DRUGS (1)
  1. ANCARON (AMIODARONE, UNSPEC) [Suspect]
     Indication: ATRIAL FIBRILLATION
     Dosage: 200 MG 1X PER 1 DAY, ORAL
     Route: 048
     Dates: start: 20030701, end: 20030801

REACTIONS (3)
  - ATRIAL FIBRILLATION [None]
  - PACING THRESHOLD INCREASED [None]
  - SINUS ARREST [None]
